FAERS Safety Report 22068272 (Version 1)
Quarter: 2023Q1

REPORT INFORMATION
  Report Type: Spontaneous
  Country: CA (occurrence: CA)
  Receive Date: 20230307
  Receipt Date: 20230307
  Transmission Date: 20230418
  Serious: Yes (Other)
  Sender: FDA-Public Use
  Company Number: None

PATIENT
  Age: 54 Year
  Sex: Male

DRUGS (13)
  1. QUETIAPINE FUMARATE [Interacting]
     Active Substance: QUETIAPINE FUMARATE
     Indication: Depression
  2. CLONAZEPAM [Interacting]
     Active Substance: CLONAZEPAM
     Indication: Depression
  3. BUPROPION [Interacting]
     Active Substance: BUPROPION
     Indication: Depression
  4. RALTEGRAVIR [Interacting]
     Active Substance: RALTEGRAVIR
     Indication: HIV infection
     Dosage: FREQUENCY: 1 EVERY 12 HOURS
  5. SERTRALINE HYDROCHLORIDE [Interacting]
     Active Substance: SERTRALINE HYDROCHLORIDE
     Indication: Depression
  6. VALPROATE SODIUM [Interacting]
     Active Substance: VALPROATE SODIUM
     Indication: Depression
  7. ZOPICLONE [Interacting]
     Active Substance: ZOPICLONE
     Indication: Depression
  8. ATAZANAVIR SULFATE [Concomitant]
     Active Substance: ATAZANAVIR SULFATE
  9. EFAVIRENZ [Concomitant]
     Active Substance: EFAVIRENZ
     Indication: HIV infection
  10. LAMIVUDINE [Concomitant]
     Active Substance: LAMIVUDINE
     Indication: HIV infection
  11. LOPINAVIR\RITONAVIR [Concomitant]
     Active Substance: LOPINAVIR\RITONAVIR
     Indication: HIV infection
  12. CLONAZEPAM [Interacting]
     Active Substance: CLONAZEPAM
     Indication: Depression
  13. ZOPICLONE [Interacting]
     Active Substance: ZOPICLONE
     Indication: Depression

REACTIONS (2)
  - Drug interaction [Unknown]
  - Psychiatric decompensation [Recovered/Resolved]
